FAERS Safety Report 9385785 (Version 1)
Quarter: 2013Q3

REPORT INFORMATION
  Report Type: Spontaneous
  Country: US (occurrence: US)
  Receive Date: 20130705
  Receipt Date: 20130705
  Transmission Date: 20140515
  Serious: No
  Sender: FDA-Public Use
  Company Number: US-009507513-1306USA012014

PATIENT
  Age: 50 Year
  Sex: Female

DRUGS (4)
  1. VICTRELIS [Suspect]
     Indication: HEPATITIS C
     Dosage: UNK
     Route: 048
     Dates: start: 20130612
  2. RIBAVIRIN (WARRICK) [Suspect]
     Indication: HEPATITIS C
     Dosage: UNK
     Route: 048
     Dates: start: 20130514
  3. PEGINTRON [Suspect]
     Indication: HEPATITIS C
     Dosage: REDIPEN
     Dates: start: 20130514
  4. AMBIEN [Suspect]

REACTIONS (13)
  - Somnolence [Unknown]
  - Blood pressure decreased [Not Recovered/Not Resolved]
  - Agitation [Unknown]
  - Poor quality sleep [Unknown]
  - Influenza [Unknown]
  - Pain [Unknown]
  - Feeling hot [Unknown]
  - Dizziness [Unknown]
  - Haemoglobin decreased [Recovered/Resolved]
  - Swelling face [Unknown]
  - Gastrointestinal motility disorder [Unknown]
  - Drug dose omission [Unknown]
  - Burning sensation [Unknown]
